FAERS Safety Report 23059721 (Version 5)
Quarter: 2023Q4

REPORT INFORMATION
  Report Type: Report from Study
  Country: CL (occurrence: CL)
  Receive Date: 20231012
  Receipt Date: 20231113
  Transmission Date: 20240109
  Serious: Yes (Hospitalization)
  Sender: FDA-Public Use
  Company Number: CL-Eisai Medical Research-EC-2023-142803

PATIENT
  Age: 55 Year
  Sex: Female
  Weight: 104 kg

DRUGS (12)
  1. LENVATINIB [Suspect]
     Active Substance: LENVATINIB
     Indication: Endometrial adenocarcinoma
     Dosage: STARTING DOSE AT 20 MILLIGRAM, FLUCTUATING DOSE
     Route: 048
     Dates: start: 20221228, end: 20230611
  2. LENVATINIB [Suspect]
     Active Substance: LENVATINIB
     Route: 048
     Dates: start: 20230612, end: 20230612
  3. PEMBROLIZUMAB [Suspect]
     Active Substance: PEMBROLIZUMAB
     Indication: Endometrial adenocarcinoma
     Route: 041
     Dates: start: 20221228, end: 20230503
  4. BELZUTIFAN [Suspect]
     Active Substance: BELZUTIFAN
     Indication: Endometrial adenocarcinoma
     Route: 048
     Dates: start: 20221228, end: 20230612
  5. LEVOTHYROXINE SODIUM [Concomitant]
     Active Substance: LEVOTHYROXINE SODIUM
     Dates: start: 200201, end: 20230813
  6. HYDROCHLOROTHIAZIDE [Concomitant]
     Active Substance: HYDROCHLOROTHIAZIDE
     Dates: start: 199301, end: 20230812
  7. KETOPROFEN [Concomitant]
     Active Substance: KETOPROFEN
     Dates: start: 20230131, end: 20230601
  8. SODIUM BICARBONATE [Concomitant]
     Active Substance: SODIUM BICARBONATE
     Dosage: RINSE
     Dates: start: 20230117
  9. ENALAPRIL [Concomitant]
     Active Substance: ENALAPRIL
     Dates: start: 199301
  10. AMLODIPINE [Concomitant]
     Active Substance: AMLODIPINE BESYLATE
     Dates: start: 20230103, end: 20230813
  11. DOMPERIDONE [Concomitant]
     Active Substance: DOMPERIDONE
     Dates: start: 20230103
  12. CARVEDILOL [Concomitant]
     Active Substance: CARVEDILOL
     Dates: start: 20230126, end: 20230813

REACTIONS (2)
  - Anorectal infection [Recovered/Resolved]
  - Anal fistula [Recovering/Resolving]

NARRATIVE: CASE EVENT DATE: 20230606
